FAERS Safety Report 18125338 (Version 2)
Quarter: 2020Q3

REPORT INFORMATION
  Report Type: Spontaneous
  Country: US (occurrence: US)
  Receive Date: 20200807
  Receipt Date: 20200821
  Transmission Date: 20201103
  Serious: No
  Sender: FDA-Public Use
  Company Number: US-TEVA-2020-US-1810648

PATIENT
  Age: 73 Year
  Sex: Female

DRUGS (1)
  1. METFORMIN HYDROCHLORIDE TAGI [Suspect]
     Active Substance: METFORMIN HYDROCHLORIDE
     Indication: DIABETES MELLITUS
     Dosage: 1500 MILLIGRAM DAILY;
     Route: 065
     Dates: end: 2020

REACTIONS (3)
  - Vomiting [Recovering/Resolving]
  - Product substitution issue [Unknown]
  - Blood glucose increased [Recovering/Resolving]
